FAERS Safety Report 4336784-0 (Version None)
Quarter: 2004Q2

REPORT INFORMATION
  Report Type: 
  Country: None (occurrence: None)
  Receive Date: 20040407
  Receipt Date: 20040330
  Transmission Date: 20050107
  Serious: Yes (Death)
  Sender: FDA-Public Use
  Company Number: US-JNJFOC-20040302828

PATIENT
  Age: 83 Year
  Sex: Female
  Weight: 71.2147 kg

DRUGS (3)
  1. RISPERDAL [Suspect]
     Indication: DEPRESSION
     Dosage: 1 MG, 2 IN 1 DAY, ORAL
     Route: 048
     Dates: start: 20020701, end: 20040130
  2. TYLENOL [Concomitant]
  3. NORVASC [Concomitant]

REACTIONS (1)
  - DEATH [None]
